FAERS Safety Report 9565299 (Version 1)
Quarter: 2013Q3

REPORT INFORMATION
  Report Type: Spontaneous
  Country: IT (occurrence: IT)
  Receive Date: 20130930
  Receipt Date: 20130930
  Transmission Date: 20140515
  Serious: Yes (Other)
  Sender: FDA-Public Use
  Company Number: IT-ABBVIE-13P-083-1152681-00

PATIENT
  Age: 41 Year
  Sex: Female

DRUGS (1)
  1. MACLADIN [Suspect]
     Indication: NASOPHARYNGITIS
     Route: 048
     Dates: start: 20130517, end: 20130519

REACTIONS (4)
  - Eyelid oedema [Recovering/Resolving]
  - Oedema peripheral [Recovering/Resolving]
  - Rash generalised [Recovering/Resolving]
  - Orbital oedema [Recovering/Resolving]
